FAERS Safety Report 6666235-2 (Version None)
Quarter: 2010Q2

REPORT INFORMATION
  Report Type: 
  Country: None (occurrence: None)
  Receive Date: 20100402
  Receipt Date: 20100322
  Transmission Date: 20101027
  Serious: Yes (Other)
  Sender: FDA-Public Use
  Company Number: FR-ELI_LILLY_AND_COMPANY-FR201002002880

PATIENT
  Age: 83 Year
  Sex: Female
  Weight: 44 kg

DRUGS (9)
  1. FORTEO [Suspect]
     Indication: OSTEOPOROSIS
     Dosage: 20 UG, DAILY (1/D)
     Route: 058
     Dates: start: 20090515, end: 20100301
  2. AROMASIN [Concomitant]
     Indication: BREAST CANCER
     Dosage: 1 D/F, DAILY (1/D)
     Route: 048
     Dates: start: 20071101, end: 20091101
  3. TAMOXIFEN CITRATE [Concomitant]
     Indication: BREAST CANCER
     Dosage: 1 D/F, DAILY (1/D)
     Route: 048
     Dates: start: 20091101, end: 20100301
  4. OROCAL [Concomitant]
     Indication: OSTEOPOROSIS
     Dosage: 1 D/F, DAILY (1/D)
     Route: 048
     Dates: start: 20090501
  5. UVEDOSE [Concomitant]
     Indication: OSTEOPOROSIS
     Dosage: 1 D/F, 1 AMPOULE EVERY 3 MONTHS
     Route: 048
     Dates: start: 20090501
  6. TRIATEC [Concomitant]
     Dosage: 1 D/F, DAILY (1/D)
     Route: 065
  7. LASIX [Concomitant]
     Dosage: 1 D/F, DAILY (1/D)
     Route: 065
  8. ELISOR [Concomitant]
     Dosage: 1 D/F, DAILY (1/D)
     Route: 065
  9. TEMERIT                            /01339101/ [Concomitant]
     Indication: HYPERTENSION
     Dosage: 1 D/F, DAILY (1/D)
     Route: 065

REACTIONS (1)
  - BREAST CANCER RECURRENT [None]
